FAERS Safety Report 8646592 (Version 9)
Quarter: 2013Q3

REPORT INFORMATION
  Report Type: Spontaneous
  Country: US (occurrence: US)
  Receive Date: 20120702
  Receipt Date: 20130906
  Transmission Date: 20140515
  Serious: Yes (Disabling, Other)
  Sender: FDA-Public Use
  Company Number: US-009507513-1206USA04634

PATIENT
  Sex: Female
  Weight: 80.27 kg

DRUGS (10)
  1. FOSAMAX [Suspect]
     Indication: OSTEOPOROSIS
     Dosage: 10 MG, QD
     Route: 048
     Dates: start: 19980304
  2. FOSAMAX [Suspect]
     Dosage: 70 MG, QW
     Route: 048
     Dates: start: 20000812, end: 20071020
  3. FOSAMAX [Suspect]
     Dosage: 40 MG, QW
     Route: 048
  4. FOSAMAX PLUS D [Suspect]
     Dosage: 70MG/2800IU
     Route: 048
     Dates: start: 20070423, end: 200710
  5. BONIVA [Suspect]
     Indication: IMPAIRED HEALING
     Dosage: 150 MG, UNK
     Route: 042
     Dates: start: 20080117, end: 20080317
  6. BONIVA [Suspect]
     Indication: OSTEOPOROSIS
  7. ESTROGENS (UNSPECIFIED) [Concomitant]
     Indication: HYPERTENSION
     Dosage: UNK
     Dates: start: 19970101, end: 200508
  8. AMLODIPINE [Concomitant]
     Indication: HYPERTENSION
     Dosage: UNK
     Dates: start: 199801, end: 2003
  9. BENAZEPRIL HYDROCHLORIDE [Concomitant]
     Indication: HYPERTENSION
     Dosage: UNK
     Dates: start: 2003
  10. MIACALCIN [Concomitant]
     Indication: OSTEOPOROSIS

REACTIONS (51)
  - Femur fracture [Unknown]
  - Osteoporosis [Unknown]
  - Low turnover osteopathy [Unknown]
  - Tibia fracture [Recovered/Resolved]
  - Basal cell carcinoma [Unknown]
  - Cerebrovascular accident [Unknown]
  - Cerebrovascular accident [Unknown]
  - Foot fracture [Unknown]
  - Cholecystectomy [Unknown]
  - Tibia fracture [Not Recovered/Not Resolved]
  - Osteonecrosis of jaw [Unknown]
  - Mitral valve prolapse [Unknown]
  - Foot fracture [Unknown]
  - Foot fracture [Unknown]
  - Hiatus hernia [Unknown]
  - Fracture [Not Recovered/Not Resolved]
  - Anxiety disorder [Unknown]
  - Drug administration error [Unknown]
  - Rib fracture [Unknown]
  - Thrombophlebitis superficial [Unknown]
  - Abdominal abscess [Unknown]
  - Fibula fracture [Unknown]
  - Depression [Unknown]
  - Bone loss [Unknown]
  - Ankle fracture [Unknown]
  - Cellulitis [Recovering/Resolving]
  - Mass [Recovering/Resolving]
  - Lymphoedema [Recovered/Resolved]
  - Diplopia [Unknown]
  - Transient ischaemic attack [Unknown]
  - Venous angioma of brain [Unknown]
  - Stress fracture [Recovered/Resolved]
  - Contusion [Recovering/Resolving]
  - Deep vein thrombosis [Unknown]
  - Impaired healing [Unknown]
  - Hypoaesthesia [Unknown]
  - Oral fibroma [Unknown]
  - Impaired healing [Unknown]
  - Weight increased [Not Recovered/Not Resolved]
  - Hypercholesterolaemia [Unknown]
  - Insomnia [Unknown]
  - Urinary incontinence [Unknown]
  - Fatigue [Unknown]
  - Asthenia [Unknown]
  - Inflammation [Recovering/Resolving]
  - Foot fracture [Unknown]
  - Vomiting [Unknown]
  - Dizziness [Unknown]
  - Nausea [Unknown]
  - Gastrooesophageal reflux disease [Unknown]
  - Pain in extremity [Unknown]
